FAERS Safety Report 11279000 (Version 4)
Quarter: 2016Q2

REPORT INFORMATION
  Report Type: Report from Study
  Country: FR (occurrence: FR)
  Receive Date: 20150717
  Receipt Date: 20160503
  Transmission Date: 20160815
  Serious: Yes (Hospitalization, Other)
  Sender: FDA-Public Use
  Company Number: FR-BRISTOL-MYERS SQUIBB COMPANY-BMS-2015-046854

PATIENT
  Age: 53 Year
  Sex: Female
  Weight: 140 kg

DRUGS (3)
  1. NIVOLUMAB [Suspect]
     Active Substance: NIVOLUMAB
     Dosage: 435 MG, UNK
     Route: 065
     Dates: start: 20150605
  2. VELBE [Suspect]
     Active Substance: VINBLASTINE SULFATE
     Indication: HODGKIN^S DISEASE
     Route: 065
  3. NIVOLUMAB [Suspect]
     Active Substance: NIVOLUMAB
     Indication: HODGKIN^S DISEASE
     Dosage: 435 MG, UNK
     Route: 065
     Dates: start: 20150522

REACTIONS (7)
  - Chest discomfort [Unknown]
  - Hyperthermia [Recovered/Resolved]
  - Malignant neoplasm progression [Unknown]
  - Cutaneous sarcoidosis [Not Recovered/Not Resolved]
  - Pruritus [Unknown]
  - Throat tightness [Not Recovered/Not Resolved]
  - Electrocardiogram T wave inversion [Not Recovered/Not Resolved]

NARRATIVE: CASE EVENT DATE: 20150522
